FAERS Safety Report 8154679-1 (Version None)
Quarter: 2012Q1

REPORT INFORMATION
  Report Type: 
  Country: None (occurrence: None)
  Receive Date: 20120221
  Receipt Date: 20120207
  Transmission Date: 20120608
  Serious: Yes (Other)
  Sender: FDA-Public Use
  Company Number: CHPA2012US002817

PATIENT
  Age: 73 Year
  Sex: Male

DRUGS (2)
  1. GAS-X MAXIMUM STRENGTH SOFTGELS [Suspect]
     Indication: PROPHYLAXIS
     Dosage: 1 DF, PRN
     Route: 048
  2. WATER PILLS [Concomitant]
     Dosage: 80 MG, UNK

REACTIONS (3)
  - MUSCLE SPASMS [None]
  - HEAD INJURY [None]
  - FALL [None]
